FAERS Safety Report 16684518 (Version 1)
Quarter: 2019Q3

REPORT INFORMATION
  Report Type: Spontaneous
  Country: FR (occurrence: FR)
  Receive Date: 20190808
  Receipt Date: 20190808
  Transmission Date: 20191004
  Serious: Yes (Other)
  Sender: FDA-Public Use
  Company Number: FR-ASTRAZENECA-2019SF12706

PATIENT
  Sex: Male

DRUGS (4)
  1. SYMBICORT [Suspect]
     Active Substance: BUDESONIDE\FORMOTEROL FUMARATE DIHYDRATE
     Indication: ASTHMA
     Dosage: 400 MICROGRAMS AT 2 BREATHS TWICE DAILY
     Route: 055
  2. SYMBICORT [Suspect]
     Active Substance: BUDESONIDE\FORMOTEROL FUMARATE DIHYDRATE
     Indication: ASTHMA
     Dosage: 2 BREATHS THREE TIMES DAILY
     Route: 055
  3. VENTOLINE [Concomitant]
     Active Substance: ALBUTEROL
  4. CLARITINE [Concomitant]
     Active Substance: LORATADINE
     Indication: MULTIPLE ALLERGIES

REACTIONS (5)
  - Asthmatic crisis [Unknown]
  - Drug ineffective [Unknown]
  - Choking [Unknown]
  - Intentional product misuse [Unknown]
  - Off label use [Unknown]
